FAERS Safety Report 25226650 (Version 2)
Quarter: 2025Q2

REPORT INFORMATION
  Report Type: Report from Study
  Country: US (occurrence: US)
  Receive Date: 20250422
  Receipt Date: 20250515
  Transmission Date: 20250716
  Serious: Yes (Other)
  Sender: ALEXION PHARMACEUTICALS
  Company Number: US-AstraZeneca-CH-00830348A

PATIENT
  Age: 36 Year

DRUGS (1)
  1. STRENSIQ [Suspect]
     Active Substance: ASFOTASE ALFA
     Indication: Hypophosphatasia
     Route: 065

REACTIONS (6)
  - Abortion spontaneous [Unknown]
  - Exposure during pregnancy [Unknown]
  - Fatigue [Recovered/Resolved with Sequelae]
  - Feeling abnormal [Recovering/Resolving]
  - Weight increased [Recovered/Resolved]
  - Overdose [Unknown]
